FAERS Safety Report 6689026-5 (Version None)
Quarter: 2010Q2

REPORT INFORMATION
  Report Type: 
  Country: None (occurrence: None)
  Receive Date: 20100420
  Receipt Date: 20100409
  Transmission Date: 20101027
  Serious: Yes (Other)
  Sender: FDA-Public Use
  Company Number: PHEH2009US15203

PATIENT
  Sex: Female
  Weight: 55.8 kg

DRUGS (9)
  1. RECLAST [Suspect]
     Indication: OSTEOPOROSIS
     Dosage: 5 MG, ONCE A YEAR
     Route: 042
     Dates: start: 20080624, end: 20080624
  2. RECLAST [Suspect]
     Dosage: UNK
     Dates: start: 20100126
  3. THYROID TAB [Concomitant]
     Indication: THYROID DISORDER
     Dosage: UNK
     Route: 048
     Dates: start: 20080601
  4. PROTONIX [Concomitant]
     Dosage: 40 MG, PRN
     Route: 048
     Dates: start: 20080601
  5. ASPIRIN [Concomitant]
     Indication: PAIN
     Dosage: 500 MG, PRN
     Route: 048
     Dates: start: 20080601
  6. FISH OIL [Concomitant]
     Dosage: 1200 MG, QD
  7. VITAMIN C [Concomitant]
     Dosage: 500 MG, QD
  8. VITAMIN E [Concomitant]
     Dosage: 400 UL, QD
  9. B-COMPLEX ^KRKA^ [Concomitant]
     Dosage: UNK

REACTIONS (11)
  - ARTHRALGIA [None]
  - CATARACT OPERATION [None]
  - CHEST PAIN [None]
  - HEADACHE [None]
  - MUSCULAR WEAKNESS [None]
  - MYALGIA [None]
  - NAUSEA [None]
  - PAIN [None]
  - RESPIRATORY RATE INCREASED [None]
  - TACHYCARDIA [None]
  - TREMOR [None]
